FAERS Safety Report 17864252 (Version 1)
Quarter: 2020Q2

REPORT INFORMATION
  Report Type: Spontaneous
  Country: US (occurrence: US)
  Receive Date: 20200604
  Receipt Date: 20200604
  Transmission Date: 20200714
  Serious: Yes (Death)
  Sender: FDA-Public Use
  Company Number: None

PATIENT
  Age: 59 Year
  Sex: Male
  Weight: 61.2 kg

DRUGS (4)
  1. ACTEMRA 400MG X1 [Concomitant]
     Dates: start: 20200521, end: 20200521
  2. REMDESIVIR. [Suspect]
     Active Substance: REMDESIVIR
     Indication: COVID-19
     Route: 040
     Dates: start: 20200522, end: 20200525
  3. HYDROXYCHLOROQUIN 200MG PO BID [Concomitant]
     Dates: start: 20200521, end: 20200521
  4. REMDESIVIR. [Suspect]
     Active Substance: REMDESIVIR
     Indication: COVID-19
     Dosage: ?          OTHER FREQUENCY:X1;?
     Route: 040
     Dates: start: 20200521, end: 20200521

REACTIONS (1)
  - Death [None]

NARRATIVE: CASE EVENT DATE: 20200603
